FAERS Safety Report 16032861 (Version 2)
Quarter: 2020Q1

REPORT INFORMATION
  Report Type: Report from Study
  Country: US (occurrence: US)
  Receive Date: 20190305
  Receipt Date: 20200102
  Transmission Date: 20200409
  Serious: Yes (Hospitalization, Other)
  Sender: FDA-Public Use
  Company Number: US-BRISTOL-MYERS SQUIBB COMPANY-BMS-2018-123405

PATIENT
  Age: 62 Year
  Sex: Female
  Weight: 63.2 kg

DRUGS (2)
  1. NIVOLUMAB [Suspect]
     Active Substance: NIVOLUMAB
     Indication: THYROID CANCER
     Dosage: 3 MG/KG, Q2WK
     Route: 042
     Dates: start: 20180924
  2. IPILIMUMAB [Suspect]
     Active Substance: IPILIMUMAB
     Indication: THYROID CANCER
     Dosage: 1 MG/KG, Q6WK
     Route: 042
     Dates: start: 20181009

REACTIONS (6)
  - Dyspnoea [Unknown]
  - Failure to thrive [Unknown]
  - Hyponatraemia [Unknown]
  - Asthenia [Unknown]
  - Colitis [Unknown]
  - Depression [Unknown]

NARRATIVE: CASE EVENT DATE: 20181231
